FAERS Safety Report 23929176 (Version 3)
Quarter: 2024Q4

REPORT INFORMATION
  Report Type: Report from Study
  Country: GR (occurrence: GR)
  Receive Date: 20240601
  Receipt Date: 20241212
  Transmission Date: 20250115
  Serious: Yes (Other)
  Sender: CELLTRION
  Company Number: GR-CELLTRION INC.-2024GR012571

PATIENT

DRUGS (8)
  1. INFLIXIMAB-DYYB [Suspect]
     Active Substance: INFLIXIMAB-DYYB
     Indication: Crohn^s disease
     Dosage: INDUCTION SCHEME
     Route: 041
     Dates: start: 20240501
  2. INFLIXIMAB [Suspect]
     Active Substance: INFLIXIMAB
     Indication: Crohn^s disease
     Dosage: 120 MILLIGRAM
     Route: 058
     Dates: start: 20240515
  3. INFLIXIMAB [Suspect]
     Active Substance: INFLIXIMAB
     Dosage: 120 MILLIGRAM
     Route: 058
     Dates: start: 20240529
  4. KINERET [Concomitant]
     Active Substance: ANAKINRA
  5. FEBUXOSTAT [Concomitant]
     Active Substance: FEBUXOSTAT
     Dosage: 120 MILLIGRAM
  6. PROBENECID [Concomitant]
     Active Substance: PROBENECID
     Dosage: 2 DOSAGE FORM EVERY 1 DAYS
  7. LANSOPRAZOLE [Concomitant]
     Active Substance: LANSOPRAZOLE
     Dosage: BID
  8. FENOFIBRATE\SIMVASTATIN [Concomitant]
     Active Substance: FENOFIBRATE\SIMVASTATIN
     Dosage: 140/40 MG EVERY NIGHT

REACTIONS (6)
  - Blood iron decreased [Recovered/Resolved]
  - Gastrooesophageal reflux disease [Unknown]
  - Diaphragmatic hernia [Unknown]
  - Drug specific antibody present [Unknown]
  - Intentional dose omission [Unknown]
  - Intentional product use issue [Unknown]
